FAERS Safety Report 9870651 (Version 1)
Quarter: 2014Q1

REPORT INFORMATION
  Report Type: Spontaneous
  Country: JP (occurrence: JP)
  Receive Date: 20140205
  Receipt Date: 20140205
  Transmission Date: 20141002
  Serious: Yes (Other)
  Sender: FDA-Public Use
  Company Number: JP-WATSON-2014-01282

PATIENT
  Age: 70 Year
  Sex: Male

DRUGS (2)
  1. PREDNISOLONE (UNKNOWN) [Suspect]
     Indication: ACUTE GENERALISED EXANTHEMATOUS PUSTULOSIS
     Dosage: 30 MG, DAILY
     Route: 048
  2. DIFLUPREDNATE [Concomitant]
     Indication: ACUTE GENERALISED EXANTHEMATOUS PUSTULOSIS
     Dosage: UNK
     Route: 061

REACTIONS (4)
  - Spondylitis [Recovering/Resolving]
  - Tendonitis [Recovering/Resolving]
  - Streptococcal infection [Recovering/Resolving]
  - Condition aggravated [Recovering/Resolving]
